FAERS Safety Report 4724780-0 (Version None)
Quarter: 2005Q3

REPORT INFORMATION
  Report Type: 
  Country: None (occurrence: None)
  Receive Date: 20050726
  Receipt Date: 20050721
  Transmission Date: 20060218
  Serious: Yes (Life-Threatening)
  Sender: FDA-Public Use
  Company Number: ES-GLAXOSMITHKLINE-B0388624A

PATIENT
  Age: 5 Month
  Sex: Male
  Weight: 7 kg

DRUGS (2)
  1. CEFUROXIME AXETIL [Suspect]
     Indication: KIDNEY INFECTION
     Dosage: 4ML TWICE PER DAY
     Route: 048
     Dates: start: 20050221, end: 20050224
  2. FOSFOMYCIN [Concomitant]

REACTIONS (1)
  - EYE DISORDER [None]
